FAERS Safety Report 6550585-4 (Version None)
Quarter: 2010Q1

REPORT INFORMATION
  Report Type: 
  Country: None (occurrence: None)
  Receive Date: 20100122
  Receipt Date: 20100122
  Transmission Date: 20100710
  Serious: No
  Sender: FDA-Public Use
  Company Number: None

PATIENT
  Sex: Female
  Weight: 96.1626 kg

DRUGS (1)
  1. TIMOLOL MALEATE [Suspect]
     Indication: GLAUCOMA
     Dosage: ONE DROP 2X A DY  (EVERY DAY - YEARS)

REACTIONS (5)
  - DRUG HYPERSENSITIVITY [None]
  - EYE IRRITATION [None]
  - LIQUID PRODUCT PHYSICAL ISSUE [None]
  - VISION BLURRED [None]
  - VISUAL IMPAIRMENT [None]
